FAERS Safety Report 23610507 (Version 2)
Quarter: 2024Q1

REPORT INFORMATION
  Report Type: Spontaneous
  Country: US (occurrence: US)
  Receive Date: 20240308
  Receipt Date: 20240325
  Transmission Date: 20240409
  Serious: No
  Sender: FDA-Public Use
  Company Number: US-BIOGEN-2024BI01252034

PATIENT
  Sex: Female

DRUGS (1)
  1. TYSABRI [Suspect]
     Active Substance: NATALIZUMAB
     Indication: Multiple sclerosis
     Route: 050
     Dates: start: 20081105

REACTIONS (7)
  - Visual impairment [Unknown]
  - Hypoaesthesia [Unknown]
  - Bone contusion [Unknown]
  - Asthenia [Unknown]
  - Discomfort [Unknown]
  - Chest pain [Unknown]
  - Fall [Recovered/Resolved]
